FAERS Safety Report 4703206-7 (Version None)
Quarter: 2005Q2

REPORT INFORMATION
  Report Type: 
  Country: None (occurrence: None)
  Receive Date: 20050629
  Receipt Date: 20050223
  Transmission Date: 20051028
  Serious: Yes (Disabling, Other)
  Sender: FDA-Public Use
  Company Number: 2005SE01140

PATIENT
  Age: 72 Year
  Sex: Female

DRUGS (4)
  1. SIMESTAT [Suspect]
     Indication: HYPERCHOLESTEROLAEMIA
     Route: 048
     Dates: start: 20040601, end: 20050105
  2. SIMVASTATIN [Suspect]
     Indication: HYPERCHOLESTEROLAEMIA
     Route: 048
     Dates: start: 20040601, end: 20040601
  3. FOLIC ACID [Concomitant]
     Route: 048
     Dates: start: 20050201
  4. SERTRALINE HCL [Concomitant]
     Indication: DEPRESSION
     Dates: start: 20040601

REACTIONS (14)
  - ANXIETY [None]
  - ASPARTATE AMINOTRANSFERASE INCREASED [None]
  - ASTHENIA [None]
  - BLOOD CREATINE PHOSPHOKINASE INCREASED [None]
  - CHROMATURIA [None]
  - COGNITIVE DISORDER [None]
  - DIFFICULTY IN WALKING [None]
  - DISORIENTATION [None]
  - FEAR [None]
  - FEELING HOT [None]
  - HOT FLUSH [None]
  - PSYCHOTIC DISORDER [None]
  - RED BLOOD CELL SEDIMENTATION RATE INCREASED [None]
  - RHABDOMYOLYSIS [None]
